FAERS Safety Report 4370309-9 (Version None)
Quarter: 2004Q2

REPORT INFORMATION
  Report Type: 
  Country: None (occurrence: None)
  Receive Date: 20040603
  Receipt Date: 20040305
  Transmission Date: 20050107
  Serious: No
  Sender: FDA-Public Use
  Company Number: US-BRISTOL-MYERS SQUIBB COMPANY-12527701

PATIENT
  Age: 38 Year
  Sex: Male

DRUGS (3)
  1. ABILIFY [Suspect]
     Indication: SCHIZOPHRENIA, PARANOID TYPE
     Dosage: 10 MG/DAY UP TO 45 MG/DAY
     Route: 048
     Dates: start: 20031201
  2. SEROQUEL [Concomitant]
     Indication: SEDATION
  3. ATIVAN [Concomitant]
     Indication: SEDATION
     Dosage: 1 OR 2 TIMES/DAY

REACTIONS (3)
  - PRESCRIBED OVERDOSE [None]
  - PSYCHOMOTOR HYPERACTIVITY [None]
  - THINKING ABNORMAL [None]
